FAERS Safety Report 7817168-7 (Version None)
Quarter: 2011Q4

REPORT INFORMATION
  Report Type: 
  Country: None (occurrence: None)
  Receive Date: 20111017
  Receipt Date: 20111017
  Transmission Date: 20120403
  Serious: Yes (Other)
  Sender: FDA-Public Use
  Company Number: None

PATIENT
  Age: 76 Year
  Sex: Female

DRUGS (2)
  1. LEVAQUIN [Suspect]
     Indication: PNEUMONIA
     Dosage: 1 TABLET
     Route: 048
     Dates: start: 20110517, end: 20110525
  2. AUGMENTIN '125' [Concomitant]
     Indication: PNEUMONIA
     Dosage: 1 TABLET
     Route: 048
     Dates: start: 20110525, end: 20110604

REACTIONS (3)
  - WEIGHT DECREASED [None]
  - CLOSTRIDIAL INFECTION [None]
  - NO THERAPEUTIC RESPONSE [None]
